FAERS Safety Report 9902819 (Version 1)
Quarter: 2014Q1

REPORT INFORMATION
  Report Type: Spontaneous
  Country: CA (occurrence: CA)
  Receive Date: 20140217
  Receipt Date: 20140217
  Transmission Date: 20141002
  Serious: Yes (Other)
  Sender: FDA-Public Use
  Company Number: PHHY2014CA018528

PATIENT
  Sex: Female

DRUGS (1)
  1. ESTRADOT [Suspect]
     Dosage: UNK UKN, UNK

REACTIONS (5)
  - Disturbance in attention [Unknown]
  - Paraesthesia [Unknown]
  - Hypoaesthesia [Unknown]
  - Hallucination [Unknown]
  - Panic attack [Unknown]
